FAERS Safety Report 16830759 (Version 1)
Quarter: 2019Q3

REPORT INFORMATION
  Report Type: Spontaneous
  Country: CN (occurrence: CN)
  Receive Date: 20190920
  Receipt Date: 20190920
  Transmission Date: 20191005
  Serious: Yes (Other)
  Sender: FDA-Public Use
  Company Number: CN-BAXTER-2019BAX018219

PATIENT
  Age: 56 Year
  Sex: Female
  Weight: 47 kg

DRUGS (4)
  1. ENDOXAN [Suspect]
     Active Substance: CYCLOPHOSPHAMIDE
     Indication: BREAST CANCER FEMALE
     Dosage: FIRST CHEMOTHERAPY WITH ENDOXAN + NS
     Route: 042
     Dates: start: 20190710, end: 20190710
  2. 0.9% SODIUM CHLORIDE INJECTION [Suspect]
     Active Substance: SODIUM CHLORIDE
     Dosage: FIRST CHEMOTHERAPY WITH PHARMORUBICIN RD + NS
     Route: 041
     Dates: start: 20190710, end: 20190710
  3. 0.9% SODIUM CHLORIDE INJECTION [Suspect]
     Active Substance: SODIUM CHLORIDE
     Indication: MEDICATION DILUTION
     Dosage: FIRST CHEMOTHERAPY WITH ENDOXAN + NS
     Route: 042
     Dates: start: 20190710, end: 20190710
  4. PHARMORUBICIN RD [Suspect]
     Active Substance: EPIRUBICIN
     Indication: BREAST CANCER FEMALE
     Dosage: FIRST CHEMOTHERAPY WITH PHARMORUBICIN RD + NS
     Route: 041
     Dates: start: 20190710, end: 20190710

REACTIONS (1)
  - Agranulocytosis [Recovered/Resolved]

NARRATIVE: CASE EVENT DATE: 20190717
